FAERS Safety Report 25232799 (Version 1)
Quarter: 2025Q2

REPORT INFORMATION
  Report Type: Spontaneous
  Country: PT (occurrence: PT)
  Receive Date: 20250424
  Receipt Date: 20250424
  Transmission Date: 20250716
  Serious: Yes (Death, Life-Threatening, Hospitalization, Other)
  Sender: RANBAXY
  Company Number: PT-SUN PHARMACEUTICAL INDUSTRIES LTD-2025R1-504731

PATIENT
  Age: 84 Year
  Sex: Female

DRUGS (1)
  1. METFORMIN\SITAGLIPTIN [Suspect]
     Active Substance: METFORMIN\SITAGLIPTIN
     Indication: Diabetes mellitus
     Route: 065

REACTIONS (1)
  - Lactic acidosis [Fatal]
